FAERS Safety Report 23804247 (Version 2)
Quarter: 2024Q2

REPORT INFORMATION
  Report Type: Spontaneous
  Country: JP (occurrence: None)
  Receive Date: 20240501
  Receipt Date: 20240531
  Transmission Date: 20240716
  Serious: Yes (Other)
  Sender: FDA-Public Use
  Company Number: 2024A095090

PATIENT
  Age: 68 Year
  Sex: Female

DRUGS (1)
  1. TAGRISSO [Suspect]
     Active Substance: OSIMERTINIB
     Indication: Non-small cell lung cancer
     Route: 048
     Dates: start: 2019

REACTIONS (5)
  - Dementia [Unknown]
  - Abnormal behaviour [Unknown]
  - Incontinence [Unknown]
  - Cognitive linguistic deficit [Unknown]
  - Speech disorder [Unknown]
